FAERS Safety Report 23234898 (Version 11)
Quarter: 2024Q4

REPORT INFORMATION
  Report Type: Spontaneous
  Country: US (occurrence: US)
  Receive Date: 20231128
  Receipt Date: 20241111
  Transmission Date: 20250115
  Serious: Yes (Disabling, Other)
  Sender: AMGEN
  Company Number: US-HORIZON THERAPEUTICS-HZN-2023-009794

PATIENT
  Age: 75 Year
  Sex: Male

DRUGS (36)
  1. TEPEZZA [Suspect]
     Active Substance: TEPROTUMUMAB-TRBW
     Indication: Endocrine ophthalmopathy
     Dosage: 730 MILLIGRAM, FIRST INFUSION
     Route: 042
     Dates: start: 20210428
  2. TEPEZZA [Suspect]
     Active Substance: TEPROTUMUMAB-TRBW
     Dosage: 1460 MILLIGRAM, SECOND INFUSION
     Route: 042
     Dates: start: 20210609
  3. TEPEZZA [Suspect]
     Active Substance: TEPROTUMUMAB-TRBW
     Dosage: 1440 MILLIGRAM, THIRD INFUSION
     Route: 042
     Dates: start: 20210630
  4. TEPEZZA [Suspect]
     Active Substance: TEPROTUMUMAB-TRBW
     Dosage: 1423 MILLIGRAM, FOURTH INFUSION
     Route: 042
     Dates: start: 20210721
  5. TEPEZZA [Suspect]
     Active Substance: TEPROTUMUMAB-TRBW
     Dosage: 1423 MILLIGRAM, FIFTH INFUSION
     Route: 042
     Dates: start: 20210811
  6. TEPEZZA [Suspect]
     Active Substance: TEPROTUMUMAB-TRBW
     Dosage: 1450 MILLIGRAM, SIXTH INFUSION
     Route: 042
     Dates: start: 20210901
  7. TEPEZZA [Suspect]
     Active Substance: TEPROTUMUMAB-TRBW
     Dosage: 1423 MILLIGRAM, SEVENTH INFUSION
     Route: 042
     Dates: start: 20210922
  8. TEPEZZA [Suspect]
     Active Substance: TEPROTUMUMAB-TRBW
     Dosage: 1421 MILLIGRAM, EIGHTH INFUSION
     Route: 042
     Dates: start: 20211013
  9. PREDNISONE [Suspect]
     Active Substance: PREDNISONE
     Indication: Graves^ disease
     Dosage: UNK
     Route: 065
  10. ASPIRIN [Concomitant]
     Active Substance: ASPIRIN
     Dosage: 81 MILLIGRAM, BID
     Route: 048
  11. Budesonide and Formoterol HFA [Concomitant]
     Dosage: UNK
     Route: 065
  12. CALCIUM CARBONATE [Concomitant]
     Active Substance: CALCIUM CARBONATE
     Dosage: UNK
     Route: 065
  13. VITAMIN D3 [Concomitant]
     Active Substance: CHOLECALCIFEROL
     Dosage: UNK
     Route: 065
  14. CHLORTHALIDONE [Concomitant]
     Active Substance: CHLORTHALIDONE
     Dosage: UNK
     Route: 065
  15. COENZYME Q10 [Concomitant]
     Active Substance: DIETARY SUPPLEMENT\UBIDECARENONE
     Dosage: UNK
     Route: 065
  16. DRONABINOL [Concomitant]
     Active Substance: DRONABINOL
     Dosage: UNK
     Route: 065
  17. METHOCARBAMOL [Concomitant]
     Active Substance: METHOCARBAMOL
     Dosage: UNK
     Route: 065
  18. NABUMETONE [Concomitant]
     Active Substance: NABUMETONE
     Dosage: UNK
     Route: 065
  19. OMEPRAZOLE [Concomitant]
     Active Substance: OMEPRAZOLE
     Dosage: UNK
     Route: 065
  20. SILDENAFIL [Concomitant]
     Active Substance: SILDENAFIL
     Dosage: UNK
     Route: 065
  21. TOBRADEX [Concomitant]
     Active Substance: DEXAMETHASONE\TOBRAMYCIN
     Dosage: UNK
     Route: 065
  22. PRAVASTATIN [Concomitant]
     Active Substance: PRAVASTATIN
     Indication: Hyperlipidaemia
     Dosage: UNK
     Route: 065
  23. TRELEGY ELLIPTA [Concomitant]
     Active Substance: FLUTICASONE FUROATE\UMECLIDINIUM BROMIDE\VILANTEROL TRIFENATATE
     Dosage: UNK
     Route: 065
  24. GLUCOSAMINE [Concomitant]
     Active Substance: GLUCOSAMINE
     Dosage: UNK
     Route: 065
  25. ESOMEPRAZOLE [Concomitant]
     Active Substance: ESOMEPRAZOLE
     Dosage: UNK, QD
     Route: 065
  26. DIETARY SUPPLEMENT\PROBIOTICS [Concomitant]
     Active Substance: DIETARY SUPPLEMENT\PROBIOTICS NOS
     Dosage: UNK, (ONE CAPSULE)
     Route: 048
  27. VITAMIN C [Concomitant]
     Active Substance: ASCORBIC ACID
     Dosage: 1000 MILLIGRAM, QD
     Route: 048
  28. ZITHROMAX [Concomitant]
     Active Substance: AZITHROMYCIN DIHYDRATE
     Dosage: UNK
     Route: 065
  29. MINERALS\VITAMINS [Concomitant]
     Active Substance: MINERALS\VITAMINS
     Dosage: UNK, QD ONE TABLET
     Route: 048
  30. SYMBICORT [Concomitant]
     Active Substance: BUDESONIDE\FORMOTEROL FUMARATE DIHYDRATE
     Dosage: UNK, Q12H
  31. LIDEX [Concomitant]
     Active Substance: FLUOCINONIDE
     Dosage: 0.05 PERCENT, BID
     Route: 061
  32. DOXYCYCLINE [Concomitant]
     Active Substance: DOXYCYCLINE
     Dosage: UNK
     Route: 065
  33. LUMIFY [Concomitant]
     Active Substance: BRIMONIDINE TARTRATE
     Dosage: 0.025 PERCENT, QD
     Route: 065
  34. GARLIC [Concomitant]
     Active Substance: GARLIC
     Dosage: 1000 MILLIGRAM, QD
     Route: 048
  35. TESSALON [Concomitant]
     Active Substance: BENZONATATE
     Dosage: 100 MILLIGRAM, TID
     Route: 048
  36. AMITIZA [Concomitant]
     Active Substance: LUBIPROSTONE
     Dosage: 24 MILLIGRAM, BID
     Route: 048

REACTIONS (97)
  - Physical disability [Not Recovered/Not Resolved]
  - Deafness [Not Recovered/Not Resolved]
  - Lower respiratory tract infection [Unknown]
  - Aortic arteriosclerosis [Unknown]
  - Exophthalmos [Unknown]
  - Hypokalaemia [Unknown]
  - Spinal fracture [Unknown]
  - Ileus [Unknown]
  - Pneumonia [Unknown]
  - Rib fracture [Unknown]
  - Myelopathy [Unknown]
  - Orbital myositis [Unknown]
  - Cervical vertebral fracture [Recovered/Resolved]
  - Carotid artery occlusion [Unknown]
  - Graves^ disease [Unknown]
  - Dislocation of vertebra [Unknown]
  - Cervical spinal stenosis [Unknown]
  - Road traffic accident [Unknown]
  - Injury [Not Recovered/Not Resolved]
  - Pain [Not Recovered/Not Resolved]
  - Nail dystrophy [Unknown]
  - Skin irritation [Unknown]
  - Emotional distress [Not Recovered/Not Resolved]
  - Product design issue [Unknown]
  - Economic problem [Not Recovered/Not Resolved]
  - Ear congestion [Unknown]
  - Eczema eyelids [Not Recovered/Not Resolved]
  - Off label use [Unknown]
  - Tinnitus [Unknown]
  - Alopecia [Unknown]
  - Hypoacusis [Not Recovered/Not Resolved]
  - Muscle spasms [Unknown]
  - Diplopia [Unknown]
  - Sinus bradycardia [Unknown]
  - Essential hypertension [Unknown]
  - Post procedural hypothyroidism [Unknown]
  - Cough [Unknown]
  - Rash [Unknown]
  - Hyperhidrosis [Unknown]
  - Temperature intolerance [Unknown]
  - Weight decreased [Unknown]
  - Arthralgia [Unknown]
  - Back pain [Unknown]
  - Gait disturbance [Unknown]
  - Myalgia [Unknown]
  - Neck pain [Unknown]
  - Asthenia [Unknown]
  - Hypoaesthesia [Unknown]
  - Haemoglobin decreased [Unknown]
  - Haematocrit decreased [Unknown]
  - Low density lipoprotein increased [Unknown]
  - Constipation [Unknown]
  - Blood glucose increased [Unknown]
  - Blood creatine phosphokinase increased [Unknown]
  - Dyspnoea [Unknown]
  - Wheezing [Unknown]
  - Haematuria [Unknown]
  - Abdominal discomfort [Unknown]
  - Sensory loss [Unknown]
  - Carbon dioxide increased [Unknown]
  - Gastrooesophageal reflux disease [Unknown]
  - Osteoarthritis [Unknown]
  - Benign prostatic hyperplasia [Unknown]
  - Hyperlipidaemia [Unknown]
  - Bronchitis bacterial [Unknown]
  - Prostatomegaly [Unknown]
  - COVID-19 [Unknown]
  - Chills [Unknown]
  - Sputum purulent [Unknown]
  - Ocular hyperaemia [Unknown]
  - Eye pruritus [Unknown]
  - Conjunctivitis allergic [Unknown]
  - Chronic obstructive pulmonary disease [Unknown]
  - Blood potassium decreased [Unknown]
  - Tinea cruris [Unknown]
  - Rales [Unknown]
  - Aspartate aminotransferase increased [Unknown]
  - Joint swelling [Unknown]
  - Weight increased [Unknown]
  - Neurodermatitis [Unknown]
  - Bursitis [Unknown]
  - Nasal congestion [Unknown]
  - Epistaxis [Unknown]
  - Upper-airway cough syndrome [Unknown]
  - Rhinorrhoea [Unknown]
  - Paranasal sinus discomfort [Unknown]
  - Blood chloride increased [Unknown]
  - Sinusitis [Unknown]
  - Myopathy [Unknown]
  - Amnesia [Unknown]
  - Cognitive disorder [Unknown]
  - Emphysema [Unknown]
  - Muscle strain [Unknown]
  - Spinal osteoarthritis [Unknown]
  - Kyphosis [Unknown]
  - Off label use [Unknown]
  - Neck injury [Unknown]

NARRATIVE: CASE EVENT DATE: 20180821
